FAERS Safety Report 14598049 (Version 1)
Quarter: 2018Q1

REPORT INFORMATION
  Report Type: Spontaneous
  Country: US (occurrence: US)
  Receive Date: 20180305
  Receipt Date: 20180305
  Transmission Date: 20180509
  Serious: Yes (Death, Other)
  Sender: FDA-Public Use
  Company Number: US-ASTELLAS-2018US010694

PATIENT
  Age: 70 Year
  Sex: Male

DRUGS (1)
  1. CRESEMBA [Suspect]
     Active Substance: ISAVUCONAZONIUM SULFATE
     Indication: ASPERGILLUS INFECTION
     Dosage: 372 MG (2 X 186 CAPSULES), ONCE DAILY
     Route: 048
     Dates: start: 20180125, end: 20180203

REACTIONS (3)
  - Death [Fatal]
  - Infection [Unknown]
  - Leukaemia [Unknown]

NARRATIVE: CASE EVENT DATE: 20180203
